FAERS Safety Report 23885881 (Version 2)
Quarter: 2024Q2

REPORT INFORMATION
  Report Type: Spontaneous
  Country: NL (occurrence: NL)
  Receive Date: 20240522
  Receipt Date: 20240610
  Transmission Date: 20240716
  Serious: Yes (Death, Hospitalization)
  Sender: FDA-Public Use
  Company Number: None

PATIENT
  Age: 72 Year
  Sex: Female

DRUGS (5)
  1. METFORMIN [Concomitant]
     Active Substance: METFORMIN HYDROCHLORIDE
     Indication: Product used for unknown indication
     Dosage: UNK
     Route: 065
  2. CARBASPIRIN CALCIUM [Interacting]
     Active Substance: CARBASPIRIN CALCIUM
     Indication: Product used for unknown indication
     Dosage: UNK
     Route: 065
  3. FLUCLOXACILLIN [Interacting]
     Active Substance: FLUCLOXACILLIN
     Indication: Staphylococcal infection
     Dosage: UNK
     Route: 042
  4. ACETAMINOPHEN [Interacting]
     Active Substance: ACETAMINOPHEN
     Indication: Product used for unknown indication
     Dosage: UNK
     Route: 065
  5. ACETAMINOPHEN [Interacting]
     Active Substance: ACETAMINOPHEN
     Indication: Product used for unknown indication
     Dosage: UNK
     Route: 065

REACTIONS (17)
  - Sepsis [Fatal]
  - Haemoglobin decreased [Fatal]
  - Acidosis [Fatal]
  - Anion gap increased [Fatal]
  - Drug interaction [Fatal]
  - Tachypnoea [Fatal]
  - Atrial fibrillation [Fatal]
  - Metabolic acidosis [Fatal]
  - Blood gases abnormal [Fatal]
  - Kussmaul respiration [Fatal]
  - Pyroglutamate increased [Fatal]
  - Dyspnoea [Fatal]
  - Depressed level of consciousness [Fatal]
  - Lethargy [Fatal]
  - Renal disorder [Fatal]
  - Hypoalbuminaemia [Fatal]
  - Glutathione synthetase deficiency [Unknown]
